FAERS Safety Report 8159026-7 (Version None)
Quarter: 2012Q1

REPORT INFORMATION
  Report Type: 
  Country: None (occurrence: None)
  Receive Date: 20120103
  Receipt Date: 20110909
  Transmission Date: 20120608
  Serious: No
  Sender: FDA-Public Use
  Company Number: AE-2011-001461

PATIENT
  Age: 59 Year
  Sex: Male

DRUGS (7)
  1. PRAVASTATIN [Concomitant]
  2. INCIVEK [Suspect]
     Dosage: 2250 MG (750 MG, 3 IN 1 D), ORAL
     Route: 048
     Dates: start: 20110904
  3. REBETOL [Concomitant]
  4. PRINIVIL [Concomitant]
  5. GLUCOPHAGE [Concomitant]
  6. PEGASYS [Concomitant]
  7. INSULIN 20/20 (INSULIN) [Concomitant]

REACTIONS (1)
  - DRUG ADMINISTRATION ERROR [None]
